FAERS Safety Report 18210749 (Version 1)
Quarter: 2020Q3

REPORT INFORMATION
  Report Type: Report from Study
  Country: US (occurrence: US)
  Receive Date: 20200829
  Receipt Date: 20200829
  Transmission Date: 20201103
  Serious: Yes (Other)
  Sender: FDA-Public Use
  Company Number: US-MYLANLABS-2020M1074451

PATIENT
  Age: 71 Year
  Sex: Male

DRUGS (4)
  1. AMLODIPINE [Suspect]
     Active Substance: AMLODIPINE BESYLATE
     Indication: PRODUCT USED FOR UNKNOWN INDICATION
     Dosage: UNK
  2. XTANDI [Interacting]
     Active Substance: ENZALUTAMIDE
     Dosage: UNK
     Route: 048
     Dates: start: 202002
  3. XTANDI [Interacting]
     Active Substance: ENZALUTAMIDE
     Indication: PROSTATE CANCER
     Dosage: UNK (PATIENT TOOK 4?5 YEARS AGO)
     Route: 048
  4. XTANDI [Interacting]
     Active Substance: ENZALUTAMIDE
     Dosage: 160 MILLIGRAM, QD
     Route: 048
     Dates: start: 20190126, end: 2020

REACTIONS (7)
  - Fatigue [Not Recovered/Not Resolved]
  - Nipple pain [Not Recovered/Not Resolved]
  - Drug interaction [Unknown]
  - Breast tenderness [Not Recovered/Not Resolved]
  - Product availability issue [Unknown]
  - Hypertension [Unknown]
  - Gynaecomastia [Not Recovered/Not Resolved]

NARRATIVE: CASE EVENT DATE: 2016
